FAERS Safety Report 8895910 (Version 1)
Quarter: 2012Q4

REPORT INFORMATION
  Report Type: 
  Country: US (occurrence: US)
  Receive Date: 20121108
  Receipt Date: 20121108
  Transmission Date: 20130627
  Serious: Yes (Other)
  Sender: FDA-Public Use
  Company Number: PHEH2012US021840

PATIENT
  Sex: Female

DRUGS (5)
  1. RECLAST [Suspect]
     Indication: BONE DISORDER
     Dosage: UNK UKN, UNK
     Route: 042
     Dates: start: 201110
  2. LEONARDINE [Concomitant]
  3. SETRALIN [Concomitant]
  4. VICODIN [Concomitant]
  5. DICLOFENAC [Concomitant]

REACTIONS (1)
  - Fibrosis [Unknown]
